APPROVED DRUG PRODUCT: SYNDROS
Active Ingredient: DRONABINOL
Strength: 5MG/ML **Federal Register determination that product was not discontinued or withdrawn for safety or effectiveness reasons**
Dosage Form/Route: SOLUTION;ORAL
Application: N205525 | Product #001
Applicant: WELLHOUSE PHARMA LLC
Approved: Mar 23, 2017 | RLD: Yes | RS: No | Type: DISCN

PATENTS:
Patent 10265293 | Expires: Aug 6, 2028
Patent 9345771 | Expires: Aug 6, 2028
Patent 11253472 | Expires: Aug 6, 2028
Patent 8222292 | Expires: Aug 6, 2028